FAERS Safety Report 5815503-2 (Version None)
Quarter: 2008Q3

REPORT INFORMATION
  Report Type: 
  Country: None (occurrence: None)
  Receive Date: 20080718
  Receipt Date: 20080710
  Transmission Date: 20090109
  Serious: Yes (Other)
  Sender: FDA-Public Use
  Company Number: GR-GENENTECH-264476

PATIENT
  Age: 29 Year

DRUGS (2)
  1. EFALIZUMAB [Suspect]
     Indication: PSORIASIS
  2. REMICADE [Concomitant]
     Indication: DRUG USE FOR UNKNOWN INDICATION
     Dosage: 5 MG/KG, UNK

REACTIONS (1)
  - PAPILLOMA VIRAL INFECTION [None]
